FAERS Safety Report 6067215-0 (Version None)
Quarter: 2009Q1

REPORT INFORMATION
  Report Type: 
  Country: None (occurrence: None)
  Receive Date: 20090205
  Receipt Date: 20090127
  Transmission Date: 20090719
  Serious: Yes (Other)
  Sender: FDA-Public Use
  Company Number: PHHY2009FR03518

PATIENT
  Age: 74 Year
  Sex: Male

DRUGS (8)
  1. GLEEVEC [Suspect]
     Indication: ACUTE LYMPHOCYTIC LEUKAEMIA
     Dosage: UNK
     Dates: start: 20060301
  2. GLEEVEC [Suspect]
     Dosage: 400 MG DAILY
     Dates: start: 20071201
  3. METHOTREXATE [Concomitant]
     Dosage: UNK
     Dates: start: 20081107, end: 20081204
  4. PURINETHOL [Concomitant]
     Dosage: 50 MG
     Dates: start: 20081107, end: 20081204
  5. ZELITREX                                /DEN/ [Concomitant]
     Dosage: 1 DF, QD
  6. PRIMPERAN TAB [Concomitant]
     Dosage: 1 DF
  7. PENTACARINAT ^AVENTIS^ [Concomitant]
     Dosage: 300 MG
  8. INDAPAMIDE [Concomitant]
     Indication: HYPERTENSION

REACTIONS (2)
  - OPTIC ISCHAEMIC NEUROPATHY [None]
  - VISUAL FIELD DEFECT [None]
